FAERS Safety Report 6757899-3 (Version None)
Quarter: 2010Q2

REPORT INFORMATION
  Report Type: 
  Country: None (occurrence: None)
  Receive Date: 20100607
  Receipt Date: 20100528
  Transmission Date: 20101027
  Serious: Yes (Hospitalization)
  Sender: FDA-Public Use
  Company Number: CH-JNJFOC-20100510631

PATIENT
  Age: 58 Year
  Sex: Male

DRUGS (3)
  1. REMICADE [Suspect]
     Indication: NECROTISING SCLERITIS
     Route: 042
  2. ENDOXAN [Suspect]
     Indication: NECROTISING SCLERITIS
     Route: 050
  3. SPIRICORT [Suspect]
     Indication: NECROTISING SCLERITIS
     Route: 048

REACTIONS (4)
  - CANDIDIASIS [None]
  - FUNGAL INFECTION [None]
  - LYMPHOCYTOSIS [None]
  - OTITIS EXTERNA [None]
